FAERS Safety Report 26132100 (Version 2)
Quarter: 2025Q4

REPORT INFORMATION
  Report Type: Spontaneous
  Country: EU (occurrence: EU)
  Receive Date: 20251208
  Receipt Date: 20251217
  Transmission Date: 20260118
  Serious: Yes (Life-Threatening, Hospitalization)
  Sender: MYLAN
  Company Number: None

PATIENT
  Age: 71 Year
  Sex: Female

DRUGS (8)
  1. NORVASC [Suspect]
     Active Substance: AMLODIPINE BESYLATE
     Indication: Product used for unknown indication
     Dosage: 0.5 DOSAGE FORM, BID (HALF A TABLET TWICE DAILY)
  2. CHLORTHALIDONE [Suspect]
     Active Substance: CHLORTHALIDONE
     Indication: Product used for unknown indication
     Dosage: 12.5 MILLIGRAM, QD (12.5 MG ONCE IN THE MORNING)
  3. AMLODIPINE\ATORVASTATIN\PERINDOPRIL [Suspect]
     Active Substance: AMLODIPINE\ATORVASTATIN\PERINDOPRIL
     Indication: Product used for unknown indication
     Dosage: QD (ONCE IN THE MORNING)
  4. METFORMIN HYDROCHLORIDE [Suspect]
     Active Substance: METFORMIN HYDROCHLORIDE
     Indication: Product used for unknown indication
     Dosage: 500 MILLIGRAM, BID (TIWCE DAILY)
  5. ASPIRIN [Concomitant]
     Active Substance: ASPIRIN
     Dosage: 100 MILLIGRAM, QD (DAILY)
  6. IVABRADINE [Concomitant]
     Active Substance: IVABRADINE
     Dosage: 0.5 DOSAGE FORM, BID (HALF A TABLET TWICE DAILY)
  7. LEVOTHYROXINE [Concomitant]
     Active Substance: LEVOTHYROXINE
     Dosage: 100 MILLIGRAM, QD (100 MG ONCE DAILY)
  8. ALLOPURINOL [Concomitant]
     Active Substance: ALLOPURINOL
     Dosage: 100 MILLIGRAM, BID (100 MG TWICE DAILY )

REACTIONS (1)
  - Malignant melanoma [Recovered/Resolved with Sequelae]

NARRATIVE: CASE EVENT DATE: 20220529
